FAERS Safety Report 6347125-1 (Version None)
Quarter: 2009Q3

REPORT INFORMATION
  Report Type: 
  Country: None (occurrence: None)
  Receive Date: 20090910
  Receipt Date: 20090831
  Transmission Date: 20100115
  Serious: Yes (Hospitalization)
  Sender: FDA-Public Use
  Company Number: FR-PFIZER INC-2009261515

PATIENT
  Age: 37 Year

DRUGS (6)
  1. DALACINE [Suspect]
     Indication: CEREBRAL TOXOPLASMOSIS
     Dosage: 600 MG, 4X/DAY
     Route: 048
     Dates: start: 20090716
  2. BRONCHOKOD [Suspect]
     Dosage: UNK
     Route: 048
     Dates: start: 20090725, end: 20090727
  3. TRUVADA [Suspect]
     Indication: HIV INFECTION
     Dosage: 1 DF, 1X/DAY
     Route: 048
     Dates: start: 20090702
  4. PREZISTA [Suspect]
     Indication: HIV INFECTION
     Dosage: 600 MG, 2X/DAY
     Route: 048
     Dates: start: 20090702
  5. NORVIR [Suspect]
     Indication: HIV INFECTION
     Dosage: 200 MG, 1X/DAY
     Route: 048
     Dates: start: 20090702
  6. MALOCIDE [Suspect]
     Indication: CEREBRAL TOXOPLASMOSIS
     Dosage: 50 MG, 1X/DAY
     Route: 048
     Dates: start: 20090702

REACTIONS (1)
  - DRUG ERUPTION [None]
